FAERS Safety Report 16693175 (Version 1)
Quarter: 2019Q3

REPORT INFORMATION
  Report Type: Spontaneous
  Country: US (occurrence: US)
  Receive Date: 20190625
  Receipt Date: 20190625
  Transmission Date: 20191004
  Serious: Yes (Hospitalization)
  Sender: FDA-Public Use
  Company Number: None

PATIENT
  Sex: Male

DRUGS (1)
  1. SOLIRIS [Suspect]
     Active Substance: ECULIZUMAB
     Indication: NEPHROTIC SYNDROME
     Route: 042
     Dates: start: 20190613

REACTIONS (5)
  - Pneumonia streptococcal [None]
  - Infection [None]
  - Product use in unapproved indication [None]
  - Meningitis [None]
  - Haemophilus infection [None]
